FAERS Safety Report 10553891 (Version 1)
Quarter: 2014Q4

REPORT INFORMATION
  Report Type: Spontaneous
  Country: US (occurrence: None)
  Receive Date: 20141028
  Receipt Date: 20141028
  Transmission Date: 20150529
  Serious: Yes (Death)
  Sender: FDA-Public Use
  Company Number: 20140000428

PATIENT
  Age: 1 Day
  Sex: Female

DRUGS (9)
  1. AMPICILLIN [Concomitant]
     Active Substance: AMPICILLIN
  2. INOMAX [Suspect]
     Active Substance: NITRIC OXIDE
     Indication: OXYGEN CONSUMPTION DECREASED
     Dosage: 20 PPM, CONTINUOUS INHALATION
     Route: 055
     Dates: start: 20141011, end: 20141011
  3. SURFACTANTE B RICHET (BOVACTANT) [Concomitant]
  4. DOBUTAMINE [Concomitant]
     Active Substance: DOBUTAMINE\DOBUTAMINE HYDROCHLORIDE
  5. MORPHINE SULFATE. [Concomitant]
     Active Substance: MORPHINE SULFATE
  6. INOMAX [Suspect]
     Active Substance: NITRIC OXIDE
     Indication: PERSISTENT FOETAL CIRCULATION
     Dosage: 20 PPM, CONTINUOUS INHALATION
     Route: 055
     Dates: start: 20141011, end: 20141011
  7. DOPAMINE [Concomitant]
     Active Substance: DOPAMINE\DOPAMINE HYDROCHLORIDE
  8. VECURONIUM BROMIDE. [Concomitant]
     Active Substance: VECURONIUM BROMIDE
  9. EPINEPHRINE. [Concomitant]
     Active Substance: EPINEPHRINE

REACTIONS (7)
  - Heart rate decreased [None]
  - Premature baby [None]
  - Neonatal respiratory failure [None]
  - Off label use [None]
  - Cardio-respiratory arrest [None]
  - Pulmonary haemorrhage [None]
  - General physical health deterioration [None]

NARRATIVE: CASE EVENT DATE: 20141011
